FAERS Safety Report 5492865-X (Version None)
Quarter: 2007Q4

REPORT INFORMATION
  Report Type: 
  Country: None (occurrence: None)
  Receive Date: 20071023
  Receipt Date: 20070605
  Transmission Date: 20080405
  Serious: No
  Sender: FDA-Public Use
  Company Number: US-BRISTOL-MYERS SQUIBB COMPANY-13805924

PATIENT

DRUGS (1)
  1. BUSPAR [Suspect]

REACTIONS (1)
  - EPISTAXIS [None]
